FAERS Safety Report 16438128 (Version 3)
Quarter: 2019Q3

REPORT INFORMATION
  Report Type: Report from Study
  Country: None (occurrence: CA)
  Receive Date: 20190617
  Receipt Date: 20190728
  Transmission Date: 20191004
  Serious: Yes (Other)
  Sender: FDA-Public Use
  Company Number: CA-ABBVIE-19K-028-2646916-00

PATIENT
  Age: 30 Year
  Sex: Female
  Weight: 48 kg

DRUGS (3)
  1. HUMIRA [Suspect]
     Active Substance: ADALIMUMAB
     Indication: CROHN^S DISEASE
     Dosage: DOSE DECREASED
     Route: 058
     Dates: start: 20131115
  2. HUMIRA [Suspect]
     Active Substance: ADALIMUMAB
     Route: 058
  3. IMURAN [Suspect]
     Active Substance: AZATHIOPRINE
     Indication: CROHN^S DISEASE
     Route: 048
     Dates: start: 20190409, end: 20190611

REACTIONS (7)
  - Drug level changed [Recovered/Resolved]
  - Toxicity to various agents [Recovered/Resolved]
  - Proctitis [Not Recovered/Not Resolved]
  - Drug level abnormal [Recovering/Resolving]
  - Crohn^s disease [Not Recovered/Not Resolved]
  - Bone marrow failure [Recovered/Resolved]
  - Drug ineffective [Unknown]

NARRATIVE: CASE EVENT DATE: 2018
